FAERS Safety Report 24793563 (Version 1)
Quarter: 2024Q4

REPORT INFORMATION
  Report Type: Spontaneous
  Country: SI (occurrence: SI)
  Receive Date: 20241231
  Receipt Date: 20241231
  Transmission Date: 20250114
  Serious: Yes (Hospitalization, Other)
  Sender: AZURITY PHARMACEUTICALS
  Company Number: SI-AZURITY PHARMACEUTICALS, INC.-AZR202412-001409

PATIENT
  Age: 78 Year
  Sex: Male

DRUGS (9)
  1. METHYLPREDNISOLONE ACETATE [Suspect]
     Active Substance: METHYLPREDNISOLONE ACETATE
     Indication: Interstitial lung disease
     Dosage: 0.5 MG/KG
     Route: 065
  2. METHYLPREDNISOLONE ACETATE [Suspect]
     Active Substance: METHYLPREDNISOLONE ACETATE
     Dosage: 4 MILLIGRAM, DAILY (LOW DOSE)
     Route: 065
  3. AMIODARONE [Concomitant]
     Active Substance: AMIODARONE
     Indication: Atrial fibrillation
     Dosage: UNK, PAST FOUR YEARS
     Route: 065
  4. FUROSEMIDE [Concomitant]
     Active Substance: FUROSEMIDE
     Indication: Product used for unknown indication
     Dosage: UNK
     Route: 065
  5. BISOPROLOL [Concomitant]
     Active Substance: BISOPROLOL
     Indication: Product used for unknown indication
     Dosage: UNK
     Route: 065
  6. ASPIRIN [Concomitant]
     Active Substance: ASPIRIN
     Indication: Product used for unknown indication
     Dosage: UNK
     Route: 065
  7. ROSUVASTATIN [Concomitant]
     Active Substance: ROSUVASTATIN
     Indication: Product used for unknown indication
     Dosage: UNK
     Route: 065
  8. Combination of inhalation therapy [Concomitant]
     Indication: Product used for unknown indication
     Dosage: UNK
  9. PANTOPRAZOLE [Concomitant]
     Active Substance: PANTOPRAZOLE
     Indication: Product used for unknown indication
     Dosage: 40 MILLIGRAM, OD
     Route: 065

REACTIONS (6)
  - Adrenocortical insufficiency acute [Recovering/Resolving]
  - Renal impairment [Recovering/Resolving]
  - Cytomegalovirus enterocolitis [Recovered/Resolved]
  - Oral herpes [Recovering/Resolving]
  - Oesophageal candidiasis [Recovering/Resolving]
  - Hypokalaemia [Recovering/Resolving]
